FAERS Safety Report 5489562-3 (Version None)
Quarter: 2007Q4

REPORT INFORMATION
  Report Type: 
  Country: None (occurrence: None)
  Receive Date: 20071016
  Receipt Date: 20071016
  Transmission Date: 20080405
  Serious: Yes (Life-Threatening, Hospitalization)
  Sender: FDA-Public Use
  Company Number: None

PATIENT
  Age: 38 Year
  Sex: Male
  Weight: 83.9154 kg

DRUGS (3)
  1. LEVAQUIN [Suspect]
     Indication: BACTERIAL INFECTION
     Dosage: 500MG  DAILY - 10 DAYS  PO
     Route: 048
     Dates: start: 20071013, end: 20071013
  2. LEVAQUIN [Suspect]
     Indication: EPIDIDYMITIS
     Dosage: 500MG  DAILY - 10 DAYS  PO
     Route: 048
     Dates: start: 20071013, end: 20071013
  3. LEVAQUIN [Suspect]
     Indication: URINARY TRACT INFECTION
     Dosage: 500MG  DAILY - 10 DAYS  PO
     Route: 048
     Dates: start: 20071013, end: 20071013

REACTIONS (2)
  - ANAPHYLACTIC SHOCK [None]
  - PULMONARY OEDEMA [None]
